FAERS Safety Report 18862245 (Version 1)
Quarter: 2021Q1

REPORT INFORMATION
  Report Type: Spontaneous
  Country: US (occurrence: US)
  Receive Date: 20210209
  Receipt Date: 20210209
  Transmission Date: 20210420
  Serious: No
  Sender: FDA-Public Use
  Company Number: US-PURDUE-USA-2020-0150417

PATIENT
  Age: 28 Year
  Sex: Female

DRUGS (2)
  1. HYDROCODONE/IBUPROFEN [Concomitant]
     Active Substance: HYDROCODONE\IBUPROFEN
     Indication: ARTHRALGIA
     Dosage: UNK
     Route: 065
  2. BUTRANS [Suspect]
     Active Substance: BUPRENORPHINE
     Indication: ARTHRALGIA
     Dosage: 1 DF, UNK
     Route: 062
     Dates: start: 20200303

REACTIONS (1)
  - Breakthrough pain [Unknown]
